FAERS Safety Report 9993024 (Version 1)
Quarter: 2014Q1

REPORT INFORMATION
  Report Type: Report from Study
  Country: US (occurrence: US)
  Receive Date: 20140310
  Receipt Date: 20140310
  Transmission Date: 20141002
  Serious: No
  Sender: FDA-Public Use
  Company Number: US-ABBVIE-13P-163-1093230-00

PATIENT
  Age: 21 Year
  Sex: Female

DRUGS (4)
  1. LUPRON DEPOT [Suspect]
     Indication: ENDOMETRIOSIS
     Dates: start: 201301
  2. PROZAC [Concomitant]
     Indication: DEPRESSION
     Route: 048
     Dates: start: 201211
  3. PROZAC [Concomitant]
     Route: 048
     Dates: end: 201303
  4. NORETHINDRONE ACETATE [Concomitant]
     Indication: PRODUCT USED FOR UNKNOWN INDICATION

REACTIONS (7)
  - Injection site pain [Recovering/Resolving]
  - Depression [Unknown]
  - Anxiety [Unknown]
  - Panic attack [Unknown]
  - Loss of consciousness [Unknown]
  - Ovulation disorder [Unknown]
  - Menorrhagia [Unknown]
